FAERS Safety Report 24152585 (Version 1)
Quarter: 2024Q3

REPORT INFORMATION
  Report Type: Spontaneous
  Country: US (occurrence: US)
  Receive Date: 20240730
  Receipt Date: 20240730
  Transmission Date: 20241017
  Serious: No
  Sender: ROCHE
  Company Number: US-ROCHE-10000036504

PATIENT
  Sex: Female

DRUGS (1)
  1. RITUXAN [Suspect]
     Active Substance: RITUXIMAB
     Indication: Multiple sclerosis
     Route: 065

REACTIONS (7)
  - Off label use [Unknown]
  - Tremor [Unknown]
  - Dysarthria [Unknown]
  - Paraesthesia [Unknown]
  - Hypoaesthesia [Unknown]
  - Gait disturbance [Unknown]
  - Pain [Unknown]
